FAERS Safety Report 24031588 (Version 3)
Quarter: 2024Q3

REPORT INFORMATION
  Report Type: Spontaneous
  Country: JP (occurrence: JP)
  Receive Date: 20240629
  Receipt Date: 20240831
  Transmission Date: 20241017
  Serious: Yes (Death, Other)
  Sender: ABBVIE
  Company Number: None

PATIENT
  Age: 82 Year
  Sex: Female
  Weight: 19 kg

DRUGS (5)
  1. BOTOX [Suspect]
     Active Substance: ONABOTULINUMTOXINA
     Indication: Muscle spasms
     Dosage: TIME INTERVAL: AS NECESSARY: 300 IU IN UPPER AND LOWER LIMBS
     Route: 030
     Dates: start: 20240621, end: 20240621
  2. DIETARY SUPPLEMENT\PROBIOTICS [Concomitant]
     Active Substance: DIETARY SUPPLEMENT\PROBIOTICS NOS
     Indication: Constipation
     Dosage: 2 G, QD
     Route: 050
     Dates: start: 20240315, end: 20240622
  3. LANSOPRAZOLE [Concomitant]
     Active Substance: LANSOPRAZOLE
     Indication: Prophylaxis against gastrointestinal ulcer
     Dosage: 15 MG, QD
     Route: 050
     Dates: start: 20230918, end: 20240622
  4. CARBIDOPA\LEVODOPA [Concomitant]
     Active Substance: CARBIDOPA\LEVODOPA
     Indication: Parkinson^s disease
     Dosage: 500 MG, QD
     Route: 050
     Dates: start: 20231026, end: 20240622
  5. AMINO ACIDS\DEXTROSE\ELECTROLYTES NOS\MINERALS\VITAMINS [Concomitant]
     Active Substance: AMINO ACIDS\DEXTROSE\ELECTROLYTES NOS\MINERALS\VITAMINS
     Indication: Nutritional supplementation
     Dosage: 1000 ML, QD
     Route: 042
     Dates: start: 20240415, end: 20240622

REACTIONS (2)
  - Parkinson^s disease [Fatal]
  - Marasmus [Fatal]

NARRATIVE: CASE EVENT DATE: 20240622
